FAERS Safety Report 6702831-1 (Version None)
Quarter: 2010Q2

REPORT INFORMATION
  Report Type: 
  Country: None (occurrence: None)
  Receive Date: 20100429
  Receipt Date: 20100429
  Transmission Date: 20101027
  Serious: Yes (Other)
  Sender: FDA-Public Use
  Company Number: None

PATIENT
  Sex: Female
  Weight: 78.0187 kg

DRUGS (2)
  1. SIMVASTATIN [Suspect]
     Indication: BLOOD CHOLESTEROL INCREASED
     Dosage: 40 MG 1 X PER DAY PO
     Route: 048
     Dates: start: 20100214, end: 20100426
  2. SIMVASTATIN [Suspect]
     Indication: BLOOD CHOLESTEROL INCREASED
     Dosage: 40 MG 1 X PER DAY PO
     Route: 048
     Dates: start: 20080801, end: 20090221

REACTIONS (12)
  - ABNORMAL DREAMS [None]
  - AMNESIA [None]
  - ARTHRALGIA [None]
  - CONSTIPATION [None]
  - FAECES DISCOLOURED [None]
  - FLUSHING [None]
  - HYPERHIDROSIS [None]
  - INSOMNIA [None]
  - MALAISE [None]
  - MUSCULAR WEAKNESS [None]
  - PAIN [None]
  - PANIC ATTACK [None]
